FAERS Safety Report 4323428-7 (Version None)
Quarter: 2004Q1

REPORT INFORMATION
  Report Type: 
  Country: None (occurrence: None)
  Receive Date: 20040325
  Receipt Date: 20040228
  Transmission Date: 20041129
  Serious: Yes (Death, Life-Threatening, Hospitalization)
  Sender: FDA-Public Use
  Company Number: WAES 0403USA00093

PATIENT
  Age: 14 Year
  Sex: Female

DRUGS (2)
  1. ALBENDAZOLE [Suspect]
     Route: 048
     Dates: start: 20040206, end: 20040206
  2. STROMECTOL [Suspect]
     Route: 048
     Dates: start: 20040206, end: 20040206

REACTIONS (12)
  - BIOPSY KIDNEY ABNORMAL [None]
  - FACE OEDEMA [None]
  - HAEMOGLOBIN DECREASED [None]
  - HYPERSENSITIVITY [None]
  - JAUNDICE [None]
  - MOUTH ULCERATION [None]
  - OLIGURIA [None]
  - PAIN [None]
  - RASH ERYTHEMATOUS [None]
  - RENAL FAILURE ACUTE [None]
  - SEPSIS [None]
  - STEVENS-JOHNSON SYNDROME [None]
